FAERS Safety Report 7591662-9 (Version None)
Quarter: 2011Q3

REPORT INFORMATION
  Report Type: 
  Country: None (occurrence: None)
  Receive Date: 20110706
  Receipt Date: 20080103
  Transmission Date: 20111222
  Serious: Yes (Death, Other)
  Sender: FDA-Public Use
  Company Number: US-BAYER-200810336NA

PATIENT
  Age: 62 Year
  Sex: Male
  Weight: 73 kg

DRUGS (29)
  1. TOPROL-XL [Concomitant]
     Dosage: 50 MG, BID
     Route: 048
  2. PREVACID [Concomitant]
     Dosage: 30 MG, UNK
     Route: 048
  3. ANCEF [Concomitant]
  4. ISOFLURANE [Concomitant]
     Dosage: UNK
     Route: 042
     Dates: start: 20050719
  5. PHENYLEPHRINE HCL [Concomitant]
     Dosage: UNK
     Dates: start: 20050719
  6. ZOLOFT [Concomitant]
     Dosage: 50 MG, QD
     Route: 048
  7. KLOR-CON [Concomitant]
     Dosage: 40 MG, BID
     Route: 048
  8. PHYTONADIONE [Concomitant]
     Dosage: 5 MG, UNK
     Route: 048
  9. ACETYLCYSTEINE [Concomitant]
     Dosage: 600 MG, BID
     Route: 048
  10. GENTAMYCIN SULFATE [Concomitant]
     Dosage: 150 MG, UNK
  11. TRASYLOL [Suspect]
     Dosage: 200 ML, LOADING DOSE
     Route: 042
     Dates: start: 20050719, end: 20050719
  12. ETOMIDATE [Concomitant]
     Dosage: UNK
     Route: 042
     Dates: start: 20050719
  13. MAGNESIUM SULFATE [Concomitant]
     Dosage: UNK
     Route: 042
     Dates: start: 20050719
  14. COUMADIN [Concomitant]
     Dosage: 4MG ALTERNATING 5 MG
     Route: 048
  15. VERSED [Concomitant]
     Dosage: UNK
     Route: 042
     Dates: start: 20050719
  16. HEPARIN [Concomitant]
     Dosage: 500 UNITS/HOUR
     Route: 042
     Dates: start: 20050719
  17. TRASYLOL [Suspect]
     Indication: ATRIAL SEPTAL DEFECT REPAIR
     Dosage: UNK, INITIAL TEST DOSE
     Route: 042
     Dates: start: 20050719, end: 20050719
  18. LISINOPRIL [Concomitant]
     Dosage: 5 MG, UNK
     Route: 048
  19. NITROGLYCERIN [Concomitant]
     Dosage: 0.1MG/HR DAILYX12 HOURS
     Route: 062
  20. MANNITOL [Concomitant]
     Route: 042
  21. PANCURONIUM [Concomitant]
     Dosage: UNK
     Route: 042
     Dates: start: 20050719
  22. LASIX [Concomitant]
     Dosage: 40 MG, BID
     Route: 048
  23. POTASSIUM [Concomitant]
     Dosage: 40 MEQ
     Route: 048
  24. ACETYLSALICYLIC ACID SRT [Concomitant]
     Dosage: 81 MG, QD
     Route: 048
  25. PROTAMINE SULFATE [Concomitant]
     Route: 042
  26. VANCOMYCIN [Concomitant]
     Dosage: 1 G, UNK
     Route: 042
     Dates: start: 20050719
  27. TRASYLOL [Suspect]
     Dosage: 50ML/HOUR INFUSION
     Route: 042
     Dates: start: 20050719, end: 20050719
  28. DOXYCYCLINE [Concomitant]
     Dosage: 100 MG, BID
     Route: 048
  29. FENTANYL [Concomitant]
     Dosage: UNK
     Route: 042
     Dates: start: 20050719

REACTIONS (14)
  - ANXIETY [None]
  - BLOOD CREATININE INCREASED [None]
  - INJURY [None]
  - EMOTIONAL DISTRESS [None]
  - PAIN [None]
  - ACTIVITIES OF DAILY LIVING IMPAIRED [None]
  - RENAL FAILURE [None]
  - ASTHENIA [None]
  - ILL-DEFINED DISORDER [None]
  - ANHEDONIA [None]
  - DEATH [None]
  - RENAL FAILURE ACUTE [None]
  - UNEVALUABLE EVENT [None]
  - DEPRESSION [None]
